FAERS Safety Report 9403420 (Version 3)
Quarter: 2014Q1

REPORT INFORMATION
  Report Type: Report from Study
  Country: US (occurrence: US)
  Receive Date: 20130716
  Receipt Date: 20140219
  Transmission Date: 20141002
  Serious: Yes (Other)
  Sender: FDA-Public Use
  Company Number: US-NAPPMUNDI-USA-2013-0104384

PATIENT
  Age: 53 Year
  Sex: Male
  Weight: 117.91 kg

DRUGS (3)
  1. OXYCONTIN (NDA 22-272) [Suspect]
     Indication: PAIN
     Dosage: 160 MG, Q8H
     Route: 048
  2. OXYCONTIN (NDA 22-272) [Suspect]
     Dosage: 160 MG, BID
     Route: 048
  3. DILAUDID [Concomitant]
     Indication: PAIN

REACTIONS (9)
  - Large intestinal haemorrhage [Not Recovered/Not Resolved]
  - Gastrointestinal pain [Not Recovered/Not Resolved]
  - Neck surgery [Unknown]
  - Deep vein thrombosis [Unknown]
  - Intentional drug misuse [Not Recovered/Not Resolved]
  - Breakthrough pain [Unknown]
  - Constipation [Unknown]
  - Haematochezia [Recovered/Resolved]
  - Abdominal pain [Recovered/Resolved]
